FAERS Safety Report 9247746 (Version 2)
Quarter: 2013Q2

REPORT INFORMATION
  Report Type: Spontaneous
  Country: ZA (occurrence: ZA)
  Receive Date: 20130423
  Receipt Date: 20130430
  Transmission Date: 20140414
  Serious: Yes (Hospitalization)
  Sender: FDA-Public Use
  Company Number: ZA-NOVOPROD-373277

PATIENT
  Age: 39 Year
  Sex: Female
  Weight: 105 kg

DRUGS (8)
  1. NOVORAPID FLEXPEN [Suspect]
     Indication: TYPE 2 DIABETES MELLITUS
     Dosage: 6 IU, TID
     Route: 058
     Dates: start: 20130308, end: 20130408
  2. PROTAPHANE FLEXPEN [Suspect]
     Indication: TYPE 2 DIABETES MELLITUS
     Dosage: 6 IU, SINGLE
     Route: 058
     Dates: start: 20130308, end: 20130408
  3. GLUCOPHAGE [Concomitant]
     Dosage: 850 MG, BID
     Route: 048
     Dates: start: 201101, end: 20130304
  4. ADALAT XL [Concomitant]
     Dosage: 30 MG, SINGLE
     Route: 048
     Dates: start: 201101
  5. FOLIC ACID FORTE [Concomitant]
     Indication: PREGNANCY
     Dosage: UNK
     Dates: start: 201207
  6. FOLIC ACID FORTE [Concomitant]
     Indication: SUPPLEMENTATION THERAPY
  7. UTROGESTAN [Concomitant]
     Dates: start: 20130306
  8. PANADO [Concomitant]
     Indication: PAIN
     Dosage: UNK
     Route: 048
     Dates: start: 20130407, end: 20130407

REACTIONS (2)
  - Abortion spontaneous incomplete [Recovered/Resolved]
  - Exposure during pregnancy [Unknown]
